FAERS Safety Report 5663279-4 (Version None)
Quarter: 2008Q1

REPORT INFORMATION
  Report Type: 
  Country: None (occurrence: None)
  Receive Date: 20080313
  Receipt Date: 20080305
  Transmission Date: 20080703
  Serious: Yes (Other)
  Sender: FDA-Public Use
  Company Number: GB-PFIZER INC-2008021887

PATIENT
  Age: 41 Year
  Sex: Female
  Weight: 60 kg

DRUGS (2)
  1. CHANTIX [Suspect]
     Indication: SMOKING CESSATION THERAPY
     Route: 048
     Dates: start: 20080207, end: 20080215
  2. EVOREL [Concomitant]
     Indication: HORMONE REPLACEMENT THERAPY
     Dosage: DAILY DOSE:100MG

REACTIONS (4)
  - CHEST DISCOMFORT [None]
  - DYSPNOEA [None]
  - FATIGUE [None]
  - MALAISE [None]
